FAERS Safety Report 5299238-3 (Version None)
Quarter: 2007Q2

REPORT INFORMATION
  Report Type: 
  Country: None (occurrence: None)
  Receive Date: 20070411
  Receipt Date: 20070411
  Transmission Date: 20071010
  Serious: Yes (Hospitalization)
  Sender: FDA-Public Use
  Company Number: None

PATIENT
  Age: 32 Year

DRUGS (4)
  1. TYLENOL W/ CODEINE NO. 4 [Suspect]
     Indication: PAIN
     Dosage: 60 MG ONCE PO
     Route: 048
     Dates: start: 20070117
  2. BUSPAR [Concomitant]
  3. HYDROXYZINE [Concomitant]
  4. MIRTAZAPINE [Concomitant]

REACTIONS (4)
  - HYPERSENSITIVITY [None]
  - HYPOTENSION [None]
  - PRURITUS [None]
  - RASH [None]
